FAERS Safety Report 17907271 (Version 1)
Quarter: 2020Q2

REPORT INFORMATION
  Report Type: Spontaneous
  Country: US (occurrence: US)
  Receive Date: 20200617
  Receipt Date: 20200617
  Transmission Date: 20200714
  Serious: Yes (Death, Other)
  Sender: FDA-Public Use
  Company Number: US-SPECGX-T202001103

PATIENT
  Age: 19 Month
  Sex: Male

DRUGS (1)
  1. BUPRENORPHINE/NALOXONE [Suspect]
     Active Substance: BUPRENORPHINE\NALOXONE
     Indication: PRODUCT USED FOR UNKNOWN INDICATION
     Dosage: UNK
     Route: 065

REACTIONS (5)
  - Unresponsive to stimuli [Unknown]
  - Lethargy [Unknown]
  - Hyperhidrosis [Unknown]
  - Accidental exposure to product by child [Fatal]
  - Restlessness [Unknown]
